FAERS Safety Report 6601200-2 (Version None)
Quarter: 2010Q1

REPORT INFORMATION
  Report Type: 
  Country: None (occurrence: None)
  Receive Date: 20100224
  Receipt Date: 20100224
  Transmission Date: 20100710
  Serious: Yes (Life-Threatening, Hospitalization)
  Sender: FDA-Public Use
  Company Number: None

PATIENT
  Age: 61 Year
  Sex: Female
  Weight: 117.028 kg

DRUGS (2)
  1. LEVAQUIN [Suspect]
     Indication: SINUS HEADACHE
     Dosage: 1 EVERY 24 HOURS
     Dates: start: 20100127
  2. AUGMENTIN XR [Suspect]
     Indication: SINUS CONGESTION
     Dosage: 2 EVERY 12 HOURS
     Dates: start: 20100118, end: 20100126

REACTIONS (10)
  - BLOOD PRESSURE DECREASED [None]
  - DYSPNOEA [None]
  - ERYTHEMA [None]
  - HYPOAESTHESIA [None]
  - MUSCLE TWITCHING [None]
  - PARAESTHESIA [None]
  - PRURITUS [None]
  - RASH [None]
  - SWELLING [None]
  - TREMOR [None]
